FAERS Safety Report 18028673 (Version 6)
Quarter: 2022Q1

REPORT INFORMATION
  Report Type: Spontaneous
  Country: US (occurrence: US)
  Receive Date: 20200716
  Receipt Date: 20220203
  Transmission Date: 20220423
  Serious: Yes (Disabling, Other)
  Sender: FDA-Public Use
  Company Number: US-CONCORDIA PHARMACEUTICALS INC.-GSH201903-000763

PATIENT

DRUGS (9)
  1. HYDROXYCHLOROQUINE [Suspect]
     Active Substance: HYDROXYCHLOROQUINE
     Indication: Product used for unknown indication
     Dosage: UNK
     Route: 065
  2. SULFASALAZINE [Suspect]
     Active Substance: SULFASALAZINE
     Indication: Product used for unknown indication
     Dosage: UNK
     Route: 065
  3. KEVZARA [Suspect]
     Active Substance: SARILUMAB
     Indication: Rheumatoid arthritis
     Dosage: 200 MG/1.14ML EVERY 2 WEEKS
     Route: 058
     Dates: start: 20180607
  4. KEVZARA [Suspect]
     Active Substance: SARILUMAB
     Dosage: 200 MG/1.14ML EVERY 2 WEEKS
     Route: 058
     Dates: start: 20180607
  5. KEVZARA [Suspect]
     Active Substance: SARILUMAB
     Dosage: 200 MG/1.14ML EVERY 2 WEEKS
     Route: 058
     Dates: start: 20180607
  6. KEVZARA [Suspect]
     Active Substance: SARILUMAB
     Dosage: 200 MG/1.14ML EVERY 2 WEEKS
     Route: 058
     Dates: start: 20180607
  7. KEVZARA [Suspect]
     Active Substance: SARILUMAB
     Dosage: 200 MG/1.14ML EVERY 2 WEEKS
     Route: 058
     Dates: start: 20180607
  8. KEVZARA [Suspect]
     Active Substance: SARILUMAB
     Dosage: 150 MG /1.14ML EVERY TWO WEEK
     Route: 058
     Dates: start: 20180705
  9. KEVZARA [Suspect]
     Active Substance: SARILUMAB
     Dosage: 200 MG/1.14ML EVERY 2 WEEKS
     Route: 058
     Dates: start: 20201202

REACTIONS (15)
  - Rheumatoid arthritis [Not Recovered/Not Resolved]
  - Loss of personal independence in daily activities [Not Recovered/Not Resolved]
  - Pain [Not Recovered/Not Resolved]
  - Off label use [Unknown]
  - Increased tendency to bruise [Not Recovered/Not Resolved]
  - Platelet count decreased [Not Recovered/Not Resolved]
  - Peripheral swelling [Not Recovered/Not Resolved]
  - Joint swelling [Unknown]
  - Peripheral swelling [Unknown]
  - Pain [Unknown]
  - Injection site pruritus [Recovered/Resolved]
  - Injection site swelling [Recovered/Resolved]
  - Abdominal pain upper [Unknown]
  - Product dose omission issue [Unknown]
  - Therapy interrupted [Unknown]

NARRATIVE: CASE EVENT DATE: 20180101
